FAERS Safety Report 7990309-7 (Version None)
Quarter: 2011Q4

REPORT INFORMATION
  Report Type: 
  Country: None (occurrence: None)
  Receive Date: 20111219
  Receipt Date: 20110421
  Transmission Date: 20120403
  Serious: No
  Sender: FDA-Public Use
  Company Number: US-ASTRAZENECA-2011SE22846

PATIENT
  Age: 73 Year
  Sex: Female
  Weight: 59.9 kg

DRUGS (3)
  1. PREMARIN [Concomitant]
  2. TEMAZEPAM [Concomitant]
  3. CRESTOR [Suspect]
     Indication: HYPERCHLORAEMIA
     Route: 048
     Dates: start: 20060101, end: 20110412

REACTIONS (6)
  - DIARRHOEA [None]
  - VITAMIN D DECREASED [None]
  - NAUSEA [None]
  - MUSCLE SPASMS [None]
  - SLEEP DISORDER [None]
  - BLOOD PRESSURE INCREASED [None]
